FAERS Safety Report 5574128-7 (Version None)
Quarter: 2007Q4

REPORT INFORMATION
  Report Type: 
  Country: None (occurrence: None)
  Receive Date: 20071221
  Receipt Date: 20071211
  Transmission Date: 20080405
  Serious: Yes (Death, Life-Threatening)
  Sender: FDA-Public Use
  Company Number: 07H-087-0313534-00

PATIENT
  Age: 63 Year
  Sex: Male

DRUGS (7)
  1. PRECEDEX [Suspect]
     Indication: SEDATION
     Dates: start: 20071127, end: 20071130
  2. HALOPERIDOL [Suspect]
     Indication: DELIRIUM
     Dosage: INTRAVENOUS
     Route: 042
     Dates: start: 20071126
  3. RILMAZAFONE HYDROCHLORIDE (RILMAZAFONE HYDROCHLORIDE) [Suspect]
     Indication: INSOMNIA
     Dosage: INTRAVENOUS
     Route: 042
     Dates: start: 20071129
  4. VALSARTAN [Suspect]
     Indication: HYPERTENSION
     Dosage: INTRAVENOUS
     Route: 042
  5. DIAZEPAM [Suspect]
     Indication: DELIRIUM
     Dosage: INTRAVENOUS
     Route: 042
     Dates: start: 20071129
  6. DILTIAZEM HYDROCHLORIDE [Suspect]
     Dosage: INTRAVENOUS
     Route: 042
     Dates: start: 20071129
  7. NICARDIPINE HYDROCHLORIDE [Concomitant]

REACTIONS (11)
  - AGGRESSION [None]
  - AV DISSOCIATION [None]
  - BLOOD PRESSURE INCREASED [None]
  - BLOOD PRESSURE SYSTOLIC DECREASED [None]
  - BRADYCARDIA [None]
  - CARDIAC ARREST [None]
  - DRUG INEFFECTIVE [None]
  - HEART RATE DECREASED [None]
  - PHLEBITIS [None]
  - POSTOPERATIVE FEVER [None]
  - PUPIL FIXED [None]
